FAERS Safety Report 13518472 (Version 3)
Quarter: 2017Q3

REPORT INFORMATION
  Report Type: Spontaneous
  Country: US (occurrence: US)
  Receive Date: 20170505
  Receipt Date: 20170714
  Transmission Date: 20171127
  Serious: No
  Sender: FDA-Public Use
  Company Number: US-LUNDBECK-DKLU2027537

PATIENT
  Age: 78 Year
  Sex: Male

DRUGS (2)
  1. NORTHERA [Suspect]
     Active Substance: DROXIDOPA
     Indication: SYNCOPE
     Route: 048
     Dates: start: 20151116
  2. NORTHERA [Suspect]
     Active Substance: DROXIDOPA
     Indication: ORTHOSTATIC HYPOTENSION
     Route: 048
     Dates: start: 20160714

REACTIONS (5)
  - Nervousness [Recovered/Resolved]
  - Injury [Unknown]
  - Musculoskeletal discomfort [Unknown]
  - Fall [Unknown]
  - Syncope [Unknown]

NARRATIVE: CASE EVENT DATE: 20170224
